FAERS Safety Report 10590889 (Version 1)
Quarter: 2014Q4

REPORT INFORMATION
  Report Type: Spontaneous
  Country: US (occurrence: US)
  Receive Date: 20141118
  Receipt Date: 20141118
  Transmission Date: 20150529
  Serious: No
  Sender: FDA-Public Use
  Company Number: US-PFIZER INC-2014315790

PATIENT
  Age: 79 Year
  Sex: Female

DRUGS (9)
  1. FLAXSEED POWDER [Concomitant]
  2. PRILOSEC [Concomitant]
     Active Substance: OMEPRAZOLE MAGNESIUM
     Dosage: 20 MG, UNK
  3. EXCEDRIN EXTRA STRENGTH CAPLET [Concomitant]
     Dosage: UNK
  4. RESTORIL [Concomitant]
     Active Substance: TEMAZEPAM
     Dosage: 22.5 MG, UNK
  5. ZYRTEC-D [Concomitant]
     Active Substance: CETIRIZINE HYDROCHLORIDE\PSEUDOEPHEDRINE HYDROCHLORIDE
     Dosage: UNK
  6. VITAMIN D3 SFGL [Concomitant]
     Dosage: 1000 IU, UNK (1000 UNIT, SFGL)
  7. XELJANZ [Suspect]
     Active Substance: TOFACITINIB CITRATE
     Indication: RHEUMATOID ARTHRITIS
     Dosage: 5 MG, 2X/DAY
     Route: 048
     Dates: start: 201405
  8. ARAVA [Concomitant]
     Active Substance: LEFLUNOMIDE
     Dosage: 10 MG, UNK
  9. SINGULAIR [Concomitant]
     Active Substance: MONTELUKAST SODIUM
     Dosage: 10 MG, UNK

REACTIONS (3)
  - Fall [Unknown]
  - Drug dose omission [Unknown]
  - Asthenia [Unknown]

NARRATIVE: CASE EVENT DATE: 201411
